FAERS Safety Report 10226508 (Version 1)
Quarter: 2014Q2

REPORT INFORMATION
  Report Type: Spontaneous
  Country: US (occurrence: US)
  Receive Date: 20140609
  Receipt Date: 20140609
  Transmission Date: 20141212
  Serious: No
  Sender: FDA-Public Use
  Company Number: US-AMGEN INC.-USASP2013070747

PATIENT
  Age: 78 Year
  Sex: Female

DRUGS (8)
  1. EPOGEN [Suspect]
     Indication: NEPHROGENIC ANAEMIA
     Dosage: 12000 UNIT, THREE TIMES WEEKLY
     Route: 065
     Dates: start: 201306
  2. RENVELA [Concomitant]
     Dosage: UNK
  3. LASIX                              /00032601/ [Concomitant]
     Dosage: UNK
  4. ALLOPURINOL [Concomitant]
     Dosage: UNK
  5. HYDROCODONE [Concomitant]
     Dosage: UNK
  6. FOLIC ACID [Concomitant]
     Dosage: UNK
  7. IRON [Concomitant]
     Dosage: UNK
  8. SYNTHROID [Concomitant]
     Dosage: UNK

REACTIONS (7)
  - Hyperhidrosis [Unknown]
  - Agitation [Recovering/Resolving]
  - Nervousness [Unknown]
  - Irritability [Unknown]
  - Feeling abnormal [Unknown]
  - Arthralgia [Unknown]
  - Myalgia [Unknown]
